FAERS Safety Report 9514282 (Version 3)
Quarter: 2013Q4

REPORT INFORMATION
  Report Type: Report from Study
  Country: US (occurrence: US)
  Receive Date: 20130910
  Receipt Date: 20131018
  Transmission Date: 20140711
  Serious: Yes (Hospitalization)
  Sender: FDA-Public Use
  Company Number: US-SANOFI-AVENTIS-2013SA089338

PATIENT
  Age: 74 Year
  Sex: Female

DRUGS (1)
  1. AUBAGIO [Suspect]
     Indication: MULTIPLE SCLEROSIS
     Route: 048
     Dates: start: 20130815

REACTIONS (6)
  - Multiple sclerosis relapse [Unknown]
  - Mobility decreased [Unknown]
  - Amnesia [Unknown]
  - Cognitive disorder [Unknown]
  - Myalgia [Unknown]
  - Alopecia [Unknown]
